FAERS Safety Report 8596687-2 (Version None)
Quarter: 2012Q3

REPORT INFORMATION
  Report Type: 
  Country: None (occurrence: None)
  Receive Date: 20120815
  Receipt Date: 20120727
  Transmission Date: 20120928
  Serious: Yes (Hospitalization)
  Sender: FDA-Public Use
  Company Number: US-PFIZER INC-2012198571

PATIENT
  Age: 38 Year
  Sex: Male

DRUGS (7)
  1. ATIVAN [Concomitant]
     Indication: ANAPHYLACTIC REACTION
     Dosage: 1 MG, SINGLE
     Route: 042
  2. ZANTAC [Concomitant]
     Indication: ANAPHYLACTIC REACTION
     Dosage: 50 MG, SINGLE
     Route: 042
  3. ZOFRAN [Concomitant]
     Indication: ANAPHYLACTIC REACTION
     Dosage: 4 MG, SINGLE
     Route: 042
  4. BENADRYL [Concomitant]
     Indication: ANAPHYLACTIC REACTION
     Dosage: 50 MG, SINGLE
     Route: 042
  5. EPIPEN [Suspect]
     Indication: ANAPHYLACTIC REACTION
     Dosage: 0.3 MG, SINGLE
     Route: 030
  6. SOLU-MEDROL [Concomitant]
     Indication: ANAPHYLACTIC REACTION
     Dosage: 125 MG, SINGLE
     Route: 042
  7. COMBIVENT [Concomitant]
     Indication: ANAPHYLACTIC REACTION
     Dosage: TWO NEBULISER TREATMENTS
     Route: 055

REACTIONS (1)
  - ACUTE MYOCARDIAL INFARCTION [None]
